FAERS Safety Report 9419729 (Version 1)
Quarter: 2013Q3

REPORT INFORMATION
  Report Type: Spontaneous
  Country: US (occurrence: US)
  Receive Date: 20130725
  Receipt Date: 20130725
  Transmission Date: 20140515
  Serious: No
  Sender: FDA-Public Use
  Company Number: US-009507513-1306USA010304

PATIENT
  Sex: Male

DRUGS (3)
  1. AFRIN [Suspect]
     Indication: NASAL CONGESTION
     Dosage: UNK, UNKNOWN
     Route: 045
  2. AFRIN [Suspect]
     Indication: DYSPNOEA
  3. AFRIN [Suspect]
     Indication: MEDICAL OBSERVATION

REACTIONS (2)
  - Drug dependence [Unknown]
  - Rebound effect [Unknown]
